FAERS Safety Report 5729535-6 (Version None)
Quarter: 2008Q2

REPORT INFORMATION
  Report Type: 
  Country: None (occurrence: None)
  Receive Date: 20080501
  Receipt Date: 20080403
  Transmission Date: 20081010
  Serious: Yes (Death)
  Sender: FDA-Public Use
  Company Number: 2008S1005645

PATIENT
  Age: 67 Year
  Sex: Female

DRUGS (6)
  1. TRAMADOL HCL [Suspect]
  2. NITRAZEPAM [Suspect]
  3. ETHANOL (EHTANOL) [Suspect]
  4. NITRAZEPAM (NITRAZEPAM) (CON.) [Concomitant]
  5. ETHANOL (ETHANOL) (CON.) [Concomitant]
  6. PROPIOMAZINE (PROPIOMAZINE) (CON.) [Concomitant]

REACTIONS (1)
  - DRUG TOXICITY [None]
